FAERS Safety Report 7584895-9 (Version None)
Quarter: 2011Q2

REPORT INFORMATION
  Report Type: 
  Country: None (occurrence: None)
  Receive Date: 20110630
  Receipt Date: 20110628
  Transmission Date: 20111010
  Serious: Yes (Other)
  Sender: FDA-Public Use
  Company Number: JP-PFIZER INC-2011144040

PATIENT
  Age: 43 Year
  Sex: Female

DRUGS (5)
  1. ACTOS [Concomitant]
     Route: 048
  2. LIPITOR [Suspect]
     Dosage: 5 MG, DAILY
     Route: 048
     Dates: start: 20100417
  3. VOGLIBOSE [Concomitant]
     Route: 048
  4. URSODEOXYCHOLIC ACID [Concomitant]
     Route: 048
  5. NATEGLINIDE [Concomitant]
     Dosage: UNK
     Route: 048

REACTIONS (1)
  - WHITE BLOOD CELL COUNT DECREASED [None]
